FAERS Safety Report 17858964 (Version 1)
Quarter: 2020Q2

REPORT INFORMATION
  Report Type: Spontaneous
  Country: FR (occurrence: FR)
  Receive Date: 20200604
  Receipt Date: 20200604
  Transmission Date: 20200714
  Serious: Yes (Hospitalization)
  Sender: FDA-Public Use
  Company Number: FR-ACCORD-183667

PATIENT
  Age: 52 Year
  Sex: Female
  Weight: 55 kg

DRUGS (49)
  1. PARACETAMOL [Suspect]
     Active Substance: ACETAMINOPHEN
     Indication: PAIN
     Dosage: NOT COMMUNICATED
     Route: 048
     Dates: start: 2016, end: 2016
  2. NIVESTIM [Concomitant]
     Active Substance: FILGRASTIM
     Indication: NEUTROPENIA
     Dosage: NOT COMMUNICATED
     Route: 042
     Dates: start: 2016, end: 2016
  3. MODAMIDE [Concomitant]
     Active Substance: AMILORIDE HYDROCHLORIDE
     Indication: PRODUCT USED FOR UNKNOWN INDICATION
     Route: 048
     Dates: start: 2016, end: 2016
  4. CYMBALTA [Concomitant]
     Active Substance: DULOXETINE HYDROCHLORIDE
     Indication: DEPRESSION
     Dosage: STRENGTH: 60 MG
     Route: 048
  5. OXYNORM [Concomitant]
     Active Substance: OXYCODONE HYDROCHLORIDE
     Indication: PAIN
     Route: 042
     Dates: start: 2016
  6. SMECTA [Concomitant]
     Active Substance: MONTMORILLONITE
     Indication: DIARRHOEA
     Dosage: NOT COMMUNICATED
     Route: 048
     Dates: start: 2016, end: 2016
  7. METHYLPREDNISOLONE. [Concomitant]
     Active Substance: METHYLPREDNISOLONE
     Indication: PRODUCT USED FOR UNKNOWN INDICATION
     Dosage: TOTAL ADMINISTERED DOSE : 1380 MG
     Route: 042
     Dates: start: 2016, end: 20161016
  8. MEROPENEM. [Concomitant]
     Active Substance: MEROPENEM
     Indication: PNEUMONIA
     Route: 042
     Dates: start: 2016, end: 2016
  9. FOLINIC ACID [Concomitant]
     Active Substance: LEUCOVORIN
     Indication: PRODUCT USED FOR UNKNOWN INDICATION
     Dosage: TOTAL ADMINISTERED DOSE : 1200 MG
     Route: 042
     Dates: start: 2016, end: 20161014
  10. HYDROXYZINE [Concomitant]
     Active Substance: HYDROXYZINE HYDROCHLORIDE
     Indication: PRODUCT USED FOR UNKNOWN INDICATION
     Route: 042
     Dates: start: 2016, end: 2016
  11. MABTHERA [Concomitant]
     Active Substance: RITUXIMAB
     Indication: B-CELL LYMPHOMA
     Dosage: TOTAL ADMINISTERED DOSE : 1435 MG
     Route: 042
     Dates: start: 2016, end: 20161010
  12. DIFFU K [Concomitant]
     Active Substance: POTASSIUM CHLORIDE
     Indication: HYPOKALAEMIA
     Route: 048
     Dates: start: 2016
  13. MIDAZOLAM. [Concomitant]
     Active Substance: MIDAZOLAM
     Indication: SEDATION
     Route: 042
     Dates: start: 2016, end: 2016
  14. RETINOL [Suspect]
     Active Substance: RETINOL
     Indication: KERATITIS
     Route: 048
  15. VFEND [Concomitant]
     Active Substance: VORICONAZOLE
     Indication: CANDIDA INFECTION
     Dosage: NOT COMMUNICATED
     Route: 042
     Dates: start: 2016, end: 2016
  16. HALDOL [Concomitant]
     Active Substance: HALOPERIDOL
     Indication: HALLUCINATION
     Dosage: UNSPECIFIED
     Route: 048
  17. PANTOPRAZOLE [Concomitant]
     Active Substance: PANTOPRAZOLE
     Indication: GASTRIC ULCER
     Route: 042
  18. INNOHEP [Concomitant]
     Active Substance: TINZAPARIN SODIUM
     Indication: VENOUS THROMBOSIS
     Dosage: 10000 IU / D
     Route: 058
  19. PRIMPERAN [Concomitant]
     Active Substance: METOCLOPRAMIDE HYDROCHLORIDE
     Indication: NAUSEA
     Dosage: STRENGTH: 10 MG, SCORED TABLET
     Route: 048
     Dates: start: 2016
  20. DEBRIDAT [Concomitant]
     Active Substance: TRIMEBUTINE MALEATE
     Indication: PAIN
     Route: 048
     Dates: start: 2016, end: 2016
  21. ECONAZOLE. [Concomitant]
     Active Substance: ECONAZOLE NITRATE
     Indication: INTERTRIGO
     Route: 067
     Dates: start: 2016, end: 2016
  22. NEFOPAM [Concomitant]
     Active Substance: NEFOPAM
     Indication: PAIN
     Dosage: IF PAIN
     Route: 048
     Dates: start: 2016
  23. LAROXYL [Concomitant]
     Active Substance: AMITRIPTYLINE HYDROCHLORIDE
     Indication: PRODUCT USED FOR UNKNOWN INDICATION
     Dosage: STRENGTH: 50 MG
     Route: 048
     Dates: end: 2016
  24. AMIKACIN. [Concomitant]
     Active Substance: AMIKACIN
     Indication: INFECTION
     Dosage: UNSPECIFIED
     Route: 042
     Dates: start: 2016, end: 2016
  25. VINCRISTINE [Concomitant]
     Active Substance: VINCRISTINE
     Indication: B-CELL LYMPHOMA
     Dosage: TOTAL ADMINISTERED DOSE : 4 MG
     Route: 042
     Dates: start: 2016, end: 20161011
  26. KAYEXALATE [Suspect]
     Active Substance: SODIUM POLYSTYRENE SULFONATE
     Indication: HYPERKALAEMIA
     Dosage: NOT COMMUNICATED
     Route: 048
     Dates: start: 2016, end: 2016
  27. BISOCE [Concomitant]
     Active Substance: BISOPROLOL
     Indication: PRODUCT USED FOR UNKNOWN INDICATION
     Dosage: STRENGTH: 2.5 MGS CORED FILM-COATED TABLET
     Route: 048
     Dates: start: 2016, end: 2016
  28. TITANOREINE [Concomitant]
     Active Substance: CARRAGEENAN\TITANIUM\ZINC
     Indication: HAEMORRHOIDS
     Dosage: NOT COMMUNICATED
     Route: 003
     Dates: start: 2016, end: 2016
  29. TIORFAN [Concomitant]
     Active Substance: RACECADOTRIL
     Indication: DIARRHOEA
     Route: 048
     Dates: start: 2016, end: 2016
  30. LIDOCAINE. [Concomitant]
     Active Substance: LIDOCAINE
     Indication: PAIN
     Dosage: 5%, MEDICATED PLASTER
     Route: 003
     Dates: start: 2016, end: 2016
  31. ENDOXAN [Suspect]
     Active Substance: CYCLOPHOSPHAMIDE
     Indication: B-CELL LYMPHOMA
     Dosage: TOTAL ADMINISTERED DOSE: 5775 MG
     Route: 042
     Dates: start: 2016, end: 20161014
  32. LASILIX FAIBLE [Suspect]
     Active Substance: FUROSEMIDE
     Indication: PRODUCT USED FOR UNKNOWN INDICATION
     Dosage: STRENGTH: 20 MG
     Route: 048
     Dates: start: 2016, end: 2016
  33. DIPEPTIVEN [Concomitant]
     Active Substance: ALANYL GLUTAMINE
     Indication: AMINO ACID LEVEL DECREASED
     Route: 042
     Dates: end: 2016
  34. MOVICOL [Concomitant]
     Active Substance: POLYETHYLENE GLYCOL 3350\POTASSIUM CHLORIDE\SODIUM BICARBONATE\SODIUM CHLORIDE
     Indication: CONSTIPATION
     Dosage: NOT COMMUNICATED
     Route: 048
     Dates: start: 2016, end: 2016
  35. ETOPOSIDE. [Concomitant]
     Active Substance: ETOPOSIDE
     Indication: B-CELL LYMPHOMA
     Dosage: TOTAL ADMINISTERED DOSE : 1480 MG
     Route: 042
     Dates: start: 2016, end: 20161120
  36. CIPROFLOXACIN. [Suspect]
     Active Substance: CIPROFLOXACIN
     Indication: PRODUCT USED FOR UNKNOWN INDICATION
     Route: 042
     Dates: start: 2016, end: 2016
  37. SPIRONOLACTONE. [Concomitant]
     Active Substance: SPIRONOLACTONE
     Indication: PRODUCT USED FOR UNKNOWN INDICATION
     Route: 048
     Dates: start: 2016, end: 2016
  38. HYDROCORTANCYL [Concomitant]
     Active Substance: PREDNISONE
     Indication: PRODUCT USED FOR UNKNOWN INDICATION
     Dosage: TOTAL ADMINISTERED DOSE : 10 MG
     Route: 042
     Dates: start: 2016, end: 20161021
  39. TOPALGIC [Concomitant]
     Indication: PAIN
     Dosage: NOT COMMUNICATED
     Route: 048
     Dates: start: 2016, end: 2016
  40. ALPRAZOLAM. [Concomitant]
     Active Substance: ALPRAZOLAM
     Indication: ANXIETY
     Route: 048
  41. DEPOCYTE [Concomitant]
     Active Substance: CYTARABINE
     Indication: B-CELL LYMPHOMA
     Dosage: STRENGTH: 50 MG
     Route: 042
     Dates: start: 20160912, end: 20160912
  42. METHOTREXATE. [Suspect]
     Active Substance: METHOTREXATE
     Indication: B-CELL LYMPHOMA
     Dosage: TOTAL ADMINISTERED DOSE : 11580 MG
     Route: 042
     Dates: start: 2016, end: 20161021
  43. TRANXENE [Concomitant]
     Active Substance: CLORAZEPATE DIPOTASSIUM
     Indication: ANXIETY
     Route: 048
     Dates: start: 2016, end: 2016
  44. VANCOMYCIN [Concomitant]
     Active Substance: VANCOMYCIN
     Indication: INFECTION
     Route: 042
     Dates: start: 2016, end: 2016
  45. TIENAM [Concomitant]
     Active Substance: CILASTATIN SODIUM\IMIPENEM
     Indication: INFECTION
     Dosage: NOT COMMUNICATED
     Route: 042
     Dates: start: 201610
  46. IMOVANE [Concomitant]
     Active Substance: ZOPICLONE
     Indication: INSOMNIA
     Route: 048
  47. CYTARABINE/CYTARABINE HYDROCHLORIDE/CYTARABINE OCFOSFATE [Concomitant]
     Active Substance: CYTARABINE
     Indication: B-CELL LYMPHOMA
     Dosage: TOTAL ADMINISTERED DOSE : 15242.5 MG
     Route: 042
     Dates: start: 2016, end: 20161120
  48. DOXORUBICIN [Concomitant]
     Active Substance: DOXORUBICIN
     Indication: B-CELL LYMPHOMA
     Dosage: TOTAL ADMINISTERED DOSE : 231 MG
     Route: 042
     Dates: start: 2016, end: 20161012
  49. ZOPHREN [Concomitant]
     Active Substance: ONDANSETRON
     Indication: VOMITING
     Dosage: 8 MG/4 ML (1 AMPOULE/24 H)
     Dates: start: 2016

REACTIONS (1)
  - Granulomatous liver disease [Recovering/Resolving]

NARRATIVE: CASE EVENT DATE: 201612
